FAERS Safety Report 13631066 (Version 1)
Quarter: 2017Q2

REPORT INFORMATION
  Report Type: Spontaneous
  Country: US (occurrence: US)
  Receive Date: 20170531
  Receipt Date: 20170531
  Transmission Date: 20170830
  Serious: No
  Sender: FDA-Public Use
  Company Number: US-ASTELLAS-1349039

PATIENT
  Age: 66 Year
  Sex: Female

DRUGS (10)
  1. FLAXSEED [Concomitant]
     Active Substance: FLAX SEED
  2. TARCEVA [Suspect]
     Active Substance: ERLOTINIB HYDROCHLORIDE
     Indication: LUNG NEOPLASM MALIGNANT
     Route: 048
     Dates: start: 20131122
  3. TRADJENTA [Concomitant]
     Active Substance: LINAGLIPTIN
  4. METFORMIN [Concomitant]
     Active Substance: METFORMIN HYDROCHLORIDE
  5. NAPROXEN. [Concomitant]
     Active Substance: NAPROXEN
  6. TARCEVA [Suspect]
     Active Substance: ERLOTINIB HYDROCHLORIDE
     Indication: BREAST CANCER FEMALE
     Route: 048
     Dates: start: 20131122
  7. NORVASC [Concomitant]
     Active Substance: AMLODIPINE BESYLATE
  8. VITAMIN B12 [Concomitant]
     Active Substance: CYANOCOBALAMIN
  9. TESSALON [Concomitant]
     Active Substance: BENZONATATE
  10. LIPITOR [Concomitant]
     Active Substance: ATORVASTATIN CALCIUM

REACTIONS (8)
  - Stomatitis [Unknown]
  - Ingrowing nail [Unknown]
  - Rash [Unknown]
  - Fungal skin infection [Recovering/Resolving]
  - Diarrhoea [Recovering/Resolving]
  - Arthralgia [Unknown]
  - Dry skin [Unknown]
  - Alopecia [Not Recovered/Not Resolved]

NARRATIVE: CASE EVENT DATE: 20140305
